FAERS Safety Report 13073938 (Version 1)
Quarter: 2016Q4

REPORT INFORMATION
  Report Type: Spontaneous
  Country: TR (occurrence: TR)
  Receive Date: 20161229
  Receipt Date: 20161229
  Transmission Date: 20170207
  Serious: Yes (Death)
  Sender: FDA-Public Use
  Company Number: PHHY2016TR176025

PATIENT
  Age: 34 Year
  Sex: Female

DRUGS (6)
  1. HALOPERIDOL. [Suspect]
     Active Substance: HALOPERIDOL
     Indication: MENTAL DISORDER
     Route: 065
  2. PROPRANOLOL [Suspect]
     Active Substance: PROPRANOLOL\PROPRANOLOL HYDROCHLORIDE
     Indication: MENTAL DISORDER
     Route: 065
  3. VALPROATE SODIUM. [Suspect]
     Active Substance: VALPROATE SODIUM
     Indication: MENTAL DISORDER
     Route: 065
  4. FLURBIPROFEN. [Suspect]
     Active Substance: FLURBIPROFEN
     Indication: MENTAL DISORDER
     Route: 065
  5. CLOZAPINE. [Suspect]
     Active Substance: CLOZAPINE
     Indication: MENTAL DISORDER
     Route: 065
  6. CHLORPHENIRAMINE. [Suspect]
     Active Substance: CHLORPHENIRAMINE
     Indication: MENTAL DISORDER
     Route: 065

REACTIONS (3)
  - Cardiac arrest [Fatal]
  - Hypersensitivity [Fatal]
  - Eosinophilic myocarditis [Fatal]
